FAERS Safety Report 8518856-X (Version None)
Quarter: 2012Q3

REPORT INFORMATION
  Report Type: 
  Country: None (occurrence: None)
  Receive Date: 20120718
  Receipt Date: 20120717
  Transmission Date: 20120928
  Serious: Yes (Life-Threatening, Hospitalization, Other)
  Sender: FDA-Public Use
  Company Number: PHFR2012GB003579

PATIENT
  Sex: Male
  Weight: 105 kg

DRUGS (11)
  1. DULOXETIME HYDROCHLORIDE [Concomitant]
     Indication: DEPRESSION
     Dosage: 90 MG, DAILY
     Route: 048
  2. ASPIRIN [Concomitant]
     Dosage: 75 MG, DAILY
     Route: 048
  3. GLICLAZIDE [Concomitant]
     Indication: DIABETES MELLITUS
     Dosage: 160 MG, BID
     Route: 048
  4. METFORMIN HYDROCHLORIDE [Concomitant]
     Dosage: 850 MG, DAILY
     Route: 048
  5. SITAGLIPTIN [Concomitant]
     Indication: DIABETES MELLITUS
     Dosage: 100 MG, DAILY
     Route: 048
  6. METFORMIN HYDROCHLORIDE [Concomitant]
     Indication: DIABETES MELLITUS
     Dosage: 850 MG, DAILY
     Route: 048
  7. CLOZARIL [Suspect]
     Indication: SCHIZOPHRENIA
     Route: 048
     Dates: start: 20050406
  8. CLOZARIL [Suspect]
     Route: 048
     Dates: start: 20120614
  9. OMEPRAZOLE [Concomitant]
     Dosage: 20 MG, DAILY
     Route: 048
  10. METFORMIN HYDROCHLORIDE [Concomitant]
     Dosage: 500 MG, DAILY
     Route: 048
  11. SIMVASTATIN [Concomitant]
     Dosage: 40 MG, DAILY
     Route: 048

REACTIONS (4)
  - RENAL ARTERY STENOSIS [None]
  - MYOCARDIAL INFARCTION [None]
  - CHEST PAIN [None]
  - ELECTROCARDIOGRAM ST SEGMENT ELEVATION [None]
